FAERS Safety Report 6489602-9 (Version None)
Quarter: 2009Q4

REPORT INFORMATION
  Report Type: 
  Country: None (occurrence: None)
  Receive Date: 20091210
  Receipt Date: 20091201
  Transmission Date: 20100525
  Serious: Yes (Life-Threatening)
  Sender: FDA-Public Use
  Company Number: US-GILEAD-2009-0025512

PATIENT
  Sex: Male
  Weight: 62.6 kg

DRUGS (8)
  1. TRUVADA [Suspect]
     Indication: HIV INFECTION
     Route: 048
     Dates: start: 20090921, end: 20091111
  2. TRUVADA [Suspect]
     Route: 048
     Dates: start: 20091130
  3. ATAZANAVIR SULFATE [Suspect]
     Indication: HIV INFECTION
     Route: 048
     Dates: start: 20090921, end: 20091111
  4. ATAZANAVIR SULFATE [Suspect]
     Route: 048
     Dates: start: 20091130
  5. RITONAVIR [Suspect]
     Indication: HIV INFECTION
     Route: 048
     Dates: start: 20090921, end: 20091111
  6. RITONAVIR [Suspect]
     Route: 048
     Dates: start: 20091130
  7. BACTRIM DS [Concomitant]
     Indication: PROPHYLAXIS
  8. ZITHROMAX [Concomitant]

REACTIONS (1)
  - HEPATIC ENZYME INCREASED [None]
